FAERS Safety Report 5667655-5 (Version None)
Quarter: 2008Q1

REPORT INFORMATION
  Report Type: 
  Country: None (occurrence: None)
  Receive Date: 20080315
  Receipt Date: 20080129
  Transmission Date: 20080703
  Serious: No
  Sender: FDA-Public Use
  Company Number: US-ABBOTT-08P-163-0435882-00

PATIENT
  Sex: Female
  Weight: 91 kg

DRUGS (9)
  1. HUMIRA [Suspect]
     Indication: RHEUMATOID ARTHRITIS
     Route: 058
     Dates: start: 20080121
  2. METOPROLOL SUCCINATE [Concomitant]
     Indication: HEART RATE IRREGULAR
     Route: 048
  3. PREDNISONE [Concomitant]
     Indication: RHEUMATOID ARTHRITIS
     Route: 048
  4. FEXOFENADINE [Concomitant]
     Indication: SEASONAL ALLERGY
     Route: 048
  5. ANOVLAR [Concomitant]
     Indication: MENOPAUSAL SYMPTOMS
     Route: 048
  6. VALSARTAN [Concomitant]
     Indication: RENAL DISORDER
     Route: 048
  7. METFORMIN HYDROCHLORIDE [Concomitant]
     Indication: DIABETES MELLITUS
     Route: 048
  8. ESOMEPRAZOLE MAGNESIUM [Concomitant]
     Indication: OESOPHAGEAL DISORDER
     Route: 048
  9. LEVOTHYROXINE SODIUM [Concomitant]
     Indication: HYPOTHYROIDISM
     Route: 048

REACTIONS (2)
  - FATIGUE [None]
  - PHARYNGOLARYNGEAL PAIN [None]
